FAERS Safety Report 19771922 (Version 4)
Quarter: 2022Q3

REPORT INFORMATION
  Report Type: Spontaneous
  Country: CA (occurrence: CA)
  Receive Date: 20210831
  Receipt Date: 20220902
  Transmission Date: 20221027
  Serious: Yes (Other)
  Sender: FDA-Public Use
  Company Number: CA-PFIZER INC-202101090706

PATIENT
  Age: 71 Year
  Sex: Female

DRUGS (4)
  1. XELJANZ [Suspect]
     Active Substance: TOFACITINIB CITRATE
     Indication: Rheumatoid arthritis
     Dosage: 5 MG, 2X/DAY STATUS DISCONTINUED
     Route: 048
     Dates: start: 20150903
  2. XELJANZ [Suspect]
     Active Substance: TOFACITINIB CITRATE
     Dosage: 5 MG, 1X/DAY
     Route: 048
  3. SULFASALAZINE [Concomitant]
     Active Substance: SULFASALAZINE
     Dosage: 1 DF
  4. PILOCARPINE HYDROCHLORIDE [Concomitant]
     Active Substance: PILOCARPINE HYDROCHLORIDE
     Dosage: UNK

REACTIONS (13)
  - Pulmonary fibrosis [Unknown]
  - Ascites [Unknown]
  - Pancreatic disorder [Unknown]
  - Diverticulum [Unknown]
  - Pancreatic cyst [Unknown]
  - Parotitis [Unknown]
  - Salivary gland cyst [Not Recovered/Not Resolved]
  - Lymphadenopathy [Unknown]
  - Dry mouth [Unknown]
  - C-reactive protein increased [Unknown]
  - Parotid gland enlargement [Recovering/Resolving]
  - Tumour marker increased [Unknown]
  - Anxiety [Unknown]

NARRATIVE: CASE EVENT DATE: 20200101
